FAERS Safety Report 14379269 (Version 3)
Quarter: 2018Q1

REPORT INFORMATION
  Report Type: Report from Study
  Country: US (occurrence: US)
  Receive Date: 20180112
  Receipt Date: 20180211
  Transmission Date: 20180509
  Serious: Yes (Hospitalization, Other)
  Sender: FDA-Public Use
  Company Number: US-TESARO, INC.-US-2017TSO04651

PATIENT

DRUGS (1)
  1. ZEJULA [Suspect]
     Active Substance: NIRAPARIB
     Indication: OVARIAN CANCER
     Dosage: 300 MG, QD
     Route: 048
     Dates: start: 20171215, end: 20180123

REACTIONS (12)
  - Scar [Unknown]
  - Headache [Recovering/Resolving]
  - Hiatus hernia [Unknown]
  - Constipation [Not Recovered/Not Resolved]
  - Small intestinal obstruction [Unknown]
  - Oral pain [Not Recovered/Not Resolved]
  - Nausea [Not Recovered/Not Resolved]
  - Oesophageal hypomotility [Unknown]
  - Gastrointestinal pain [Unknown]
  - Fatigue [Unknown]
  - Diverticulitis [Unknown]
  - Vomiting [Unknown]
